FAERS Safety Report 9671064 (Version 1)
Quarter: 2013Q4

REPORT INFORMATION
  Report Type: Spontaneous
  Country: US (occurrence: US)
  Receive Date: 20131106
  Receipt Date: 20131106
  Transmission Date: 20140711
  Serious: No
  Sender: FDA-Public Use
  Company Number: US-PFIZER INC-2013312225

PATIENT
  Sex: 0

DRUGS (5)
  1. ENBREL [Suspect]
     Dosage: UNK
  2. METHOTREXATE SODIUM [Suspect]
     Dosage: UNK
  3. FOLIC ACID [Suspect]
     Dosage: UNK
  4. HUMIRA [Suspect]
     Dosage: UNK
  5. ORENCIA [Suspect]
     Dosage: UNK

REACTIONS (1)
  - Drug ineffective [Unknown]
